FAERS Safety Report 23153184 (Version 1)
Quarter: 2023Q4

REPORT INFORMATION
  Report Type: Spontaneous
  Country: US (occurrence: None)
  Receive Date: 20231106
  Receipt Date: 20231106
  Transmission Date: 20240109
  Serious: Yes (Life-Threatening, Hospitalization, Other)
  Sender: FDA-Public Use
  Company Number: None

PATIENT
  Age: 66 Year
  Sex: Male
  Weight: 68.7 kg

DRUGS (2)
  1. CARVYKTI [Suspect]
     Active Substance: CILTACABTAGENE AUTOLEUCEL
     Indication: Plasma cell myeloma
     Dosage: OTHER FREQUENCY : ONCE;?
     Route: 040
     Dates: start: 20230918, end: 20230919
  2. CARVYKTI [Concomitant]
     Active Substance: CILTACABTAGENE AUTOLEUCEL
     Dates: start: 20230918, end: 20230919

REACTIONS (7)
  - Cytokine release syndrome [None]
  - Pancytopenia [None]
  - Tachycardia [None]
  - Pyrexia [None]
  - Pneumonia [None]
  - Escherichia test positive [None]
  - Hyperferritinaemia [None]

NARRATIVE: CASE EVENT DATE: 20231006
